FAERS Safety Report 14261289 (Version 1)
Quarter: 2017Q4

REPORT INFORMATION
  Report Type: Spontaneous
  Country: US (occurrence: None)
  Receive Date: 20171207
  Receipt Date: 20171207
  Transmission Date: 20180321
  Serious: No
  Sender: FDA-Public Use
  Company Number: None

PATIENT
  Age: 67 Year
  Sex: Male
  Weight: 80 kg

DRUGS (1)
  1. GLATIRAMER [Suspect]
     Active Substance: GLATIRAMER
     Indication: MULTIPLE SCLEROSIS
     Route: 058
     Dates: start: 20170115, end: 20171205

REACTIONS (5)
  - Injection site induration [None]
  - Injection site bruising [None]
  - Injection site indentation [None]
  - Injection site discolouration [None]
  - Fatigue [None]

NARRATIVE: CASE EVENT DATE: 20170115
